FAERS Safety Report 15211573 (Version 1)
Quarter: 2018Q3

REPORT INFORMATION
  Report Type: Spontaneous
  Country: US (occurrence: US)
  Receive Date: 20180702
  Receipt Date: 20180702
  Transmission Date: 20181010
  Serious: No
  Sender: FDA-Public Use
  Company Number: None

PATIENT
  Sex: Female

DRUGS (1)
  1. HUMIRA [Suspect]
     Active Substance: ADALIMUMAB
     Indication: COLITIS
     Route: 058
     Dates: start: 201805

REACTIONS (6)
  - Irritability [None]
  - Depression [None]
  - Anxiety [None]
  - Back pain [None]
  - Emotional disorder [None]
  - Musculoskeletal stiffness [None]
